FAERS Safety Report 7467914-X (Version None)
Quarter: 2011Q2

REPORT INFORMATION
  Report Type: 
  Country: None (occurrence: None)
  Receive Date: 20110509
  Receipt Date: 20110214
  Transmission Date: 20111010
  Serious: No
  Sender: FDA-Public Use
  Company Number: US-ALEXION-A201100178

PATIENT
  Sex: Male

DRUGS (8)
  1. SOLIRIS [Suspect]
     Indication: PAROXYSMAL NOCTURNAL HAEMOGLOBINURIA
     Dosage: 600 MG, QW
     Route: 042
     Dates: start: 20100928, end: 20101001
  2. FOLIC ACID [Concomitant]
     Dosage: UNK
     Route: 048
  3. SOLIRIS [Suspect]
     Dosage: 900 MG, Q2W
     Route: 042
     Dates: start: 20101001
  4. ZOCOR [Concomitant]
     Dosage: UNK
     Route: 048
  5. HYDROXYUREA [Concomitant]
     Indication: PLATELET COUNT INCREASED
     Dosage: UNK
     Route: 048
     Dates: end: 20110214
  6. AGRYLIN [Concomitant]
     Indication: PLATELET COUNT INCREASED
     Dosage: 0.5 MG, BID
     Route: 048
     Dates: start: 20110215
  7. FLOMAX [Concomitant]
     Dosage: UNK
     Route: 048
  8. ASPIRIN [Concomitant]
     Dosage: UNK
     Route: 048

REACTIONS (2)
  - NIGHT SWEATS [None]
  - TRANSFUSION [None]
